FAERS Safety Report 9623310 (Version 2)
Quarter: 2014Q1

REPORT INFORMATION
  Report Type: Spontaneous
  Country: GB (occurrence: GB)
  Receive Date: 20131015
  Receipt Date: 20140203
  Transmission Date: 20141002
  Serious: Yes (Disabling, Other)
  Sender: FDA-Public Use
  Company Number: PHHY2013GB111039

PATIENT
  Age: 54 Year
  Sex: Male
  Weight: 83 kg

DRUGS (13)
  1. ATENOLOL [Suspect]
     Dosage: 50 MG, UNK
     Route: 048
     Dates: start: 2003
  2. PIOGLITAZONE [Suspect]
     Dosage: UNK UKN, UNK
  3. METFORMIN [Concomitant]
     Dosage: UNK UKN, UNK
  4. VIAGRA [Concomitant]
     Dosage: UNK UKN, UNK
  5. VITAMIN B12 [Concomitant]
     Dosage: UNK UKN, UNK
  6. MULTIVITAMIN [Concomitant]
     Dosage: UNK UKN, UNK
  7. IRON [Concomitant]
     Dosage: UNK UKN, UNK
  8. COD LIVER OIL [Concomitant]
     Dosage: UNK UKN, UNK
  9. ASPIRIN [Concomitant]
     Dosage: UNK UKN, UNK
  10. CAPOTEN [Concomitant]
     Dosage: UNK UKN, UNK
  11. THYROXINE [Concomitant]
     Dosage: UNK UKN, UNK
  12. BYETTA [Concomitant]
     Dosage: UNK UKN, UNK
  13. GLICLAZIDE [Concomitant]
     Dosage: UNK UKN, UNK

REACTIONS (8)
  - Lethargy [Not Recovered/Not Resolved]
  - Loss of libido [Not Recovered/Not Resolved]
  - Anorgasmia [Not Recovered/Not Resolved]
  - Blood glucose abnormal [Recovering/Resolving]
  - Hand-arm vibration syndrome [Unknown]
  - Condition aggravated [Unknown]
  - Paraesthesia [Not Recovered/Not Resolved]
  - Erectile dysfunction [Not Recovered/Not Resolved]
